FAERS Safety Report 24910720 (Version 7)
Quarter: 2025Q4

REPORT INFORMATION
  Report Type: Spontaneous
  Country: US (occurrence: US)
  Receive Date: 20250131
  Receipt Date: 20251009
  Transmission Date: 20260117
  Serious: Yes (Death, Other)
  Sender: PFIZER
  Company Number: US-PFIZER INC-202500020542

PATIENT
  Age: 96 Year
  Sex: Female
  Weight: 54.422 kg

DRUGS (15)
  1. SONATA [Suspect]
     Active Substance: ZALEPLON
     Dosage: UNK
  2. DIAZEPAM [Suspect]
     Active Substance: DIAZEPAM
     Dosage: UNK
     Route: 048
     Dates: start: 20230901
  3. XANAX [Suspect]
     Active Substance: ALPRAZOLAM
     Indication: Feeling of relaxation
     Dosage: UNK
     Dates: start: 20230901, end: 20231029
  4. AMBIEN [Suspect]
     Active Substance: ZOLPIDEM TARTRATE
     Indication: Sleep disorder
     Dosage: QD (AT BEDTIME)
     Route: 004
     Dates: start: 202309
  5. AMBIEN [Suspect]
     Active Substance: ZOLPIDEM TARTRATE
     Indication: Feeling of relaxation
  6. VALIUM [Suspect]
     Active Substance: DIAZEPAM
     Indication: Feeling of relaxation
     Dosage: UNK
  7. METHOCARBAMOL [Suspect]
     Active Substance: METHOCARBAMOL
     Indication: Feeling of relaxation
     Dosage: UNK
  8. MELATONIN [Suspect]
     Active Substance: MELATONIN
     Dosage: UNK
  9. LUNESTA [Suspect]
     Active Substance: ESZOPICLONE
     Dosage: UNK
  10. RESTORIL [Suspect]
     Active Substance: TEMAZEPAM
     Dosage: UNK
  11. ROZEREM [Suspect]
     Active Substance: RAMELTEON
     Dosage: UNK
  12. ATIVAN [Suspect]
     Active Substance: LORAZEPAM
     Dosage: UNK
  13. DIPHENHYDRAMINE HYDROCHLORIDE [Suspect]
     Active Substance: DIPHENHYDRAMINE HYDROCHLORIDE
     Dosage: UNK
  14. COUMADIN [Concomitant]
     Active Substance: WARFARIN SODIUM
     Dosage: UNK
     Dates: start: 202309
  15. COUMADIN [Concomitant]
     Active Substance: WARFARIN SODIUM
     Dosage: UNK
     Dates: end: 202310

REACTIONS (2)
  - Cardiac arrest [Fatal]
  - Overdose [Fatal]

NARRATIVE: CASE EVENT DATE: 20231029
